FAERS Safety Report 19301785 (Version 1)
Quarter: 2021Q2

REPORT INFORMATION
  Report Type: Spontaneous
  Country: US (occurrence: US)
  Receive Date: 20210525
  Receipt Date: 20210525
  Transmission Date: 20210717
  Serious: No
  Sender: FDA-Public Use
  Company Number: None

PATIENT
  Sex: Male
  Weight: 76.5 kg

DRUGS (7)
  1. FLAXSEED [Concomitant]
     Active Substance: FLAX SEED
  2. ALPRAZOLAM. [Suspect]
     Active Substance: ALPRAZOLAM
     Indication: SLEEP DISORDER
     Dosage: ?          QUANTITY:60 TABLET(S);?
     Route: 048
     Dates: start: 20210521, end: 20210522
  3. GARLIC. [Concomitant]
     Active Substance: GARLIC
  4. TUMERIC [Concomitant]
     Active Substance: HERBALS\TURMERIC
  5. ALPRAZOLAM. [Suspect]
     Active Substance: ALPRAZOLAM
     Indication: ANXIETY
     Dosage: ?          QUANTITY:60 TABLET(S);?
     Route: 048
     Dates: start: 20210521, end: 20210522
  6. LIDOCAINE PATCH [Concomitant]
     Active Substance: LIDOCAINE
  7. VITAMIN B COMPLEX [Concomitant]
     Active Substance: CYANOCOBALAMIN\DEXPANTHENOL\NIACINAMIDE\PYRIDOXINE HYDROCHLORIDE\RIBOFLAVIN 5^-PHOSPHATE SODIUM\THIAMINE HYDROCHLORIDE\VITAMIN B COMPLEX

REACTIONS (3)
  - Drug ineffective [None]
  - Tinnitus [None]
  - Product substitution issue [None]

NARRATIVE: CASE EVENT DATE: 20210521
